FAERS Safety Report 15297619 (Version 2)
Quarter: 2018Q3

REPORT INFORMATION
  Report Type: Report from Study
  Country: BR (occurrence: BR)
  Receive Date: 20180820
  Receipt Date: 20180928
  Transmission Date: 20181010
  Serious: Yes (Other)
  Sender: FDA-Public Use
  Company Number: PHHY2018BR064012

PATIENT
  Age: 25 Year
  Sex: Female
  Weight: 50 kg

DRUGS (2)
  1. CETIRIZINE [Suspect]
     Active Substance: CETIRIZINE HYDROCHLORIDE
     Indication: PRODUCT USED FOR UNKNOWN INDICATION
     Route: 065
  2. XOLAIR [Suspect]
     Active Substance: OMALIZUMAB
     Indication: URTICARIA
     Dosage: 300 MG, QMO EVERY 4 WEEK
     Route: 058
     Dates: start: 20180625

REACTIONS (14)
  - Tremor [Not Recovered/Not Resolved]
  - Panic attack [Not Recovered/Not Resolved]
  - Blister [Unknown]
  - Feeling abnormal [Not Recovered/Not Resolved]
  - Pruritus [Not Recovered/Not Resolved]
  - Heart rate increased [Not Recovered/Not Resolved]
  - Burning sensation [Not Recovered/Not Resolved]
  - Rash erythematous [Not Recovered/Not Resolved]
  - Paralysis [Recovered/Resolved]
  - Pain [Recovered/Resolved]
  - Nervousness [Not Recovered/Not Resolved]
  - Erythema [Unknown]
  - Head discomfort [Unknown]
  - Paraesthesia [Recovering/Resolving]

NARRATIVE: CASE EVENT DATE: 20180727
